FAERS Safety Report 10052446 (Version 3)
Quarter: 2014Q2

REPORT INFORMATION
  Report Type: Spontaneous
  Country: CA (occurrence: CA)
  Receive Date: 20140402
  Receipt Date: 20140416
  Transmission Date: 20141212
  Serious: Yes (Hospitalization, Other)
  Sender: FDA-Public Use
  Company Number: CA-ASTELLAS-2014US002347

PATIENT
  Sex: Male

DRUGS (3)
  1. PROGRAF [Suspect]
     Indication: LUNG TRANSPLANT
     Route: 048
     Dates: start: 20110121, end: 201310
  2. PROGRAF [Suspect]
     Route: 048
     Dates: start: 20140211
  3. ADVAGRAF [Suspect]
     Indication: LUNG TRANSPLANT
     Route: 048
     Dates: start: 201310, end: 201402

REACTIONS (3)
  - Lung transplant rejection [Recovering/Resolving]
  - Drug dispensing error [Recovered/Resolved]
  - Off label use [Unknown]
